FAERS Safety Report 8390413-8 (Version None)
Quarter: 2012Q2

REPORT INFORMATION
  Report Type: 
  Country: None (occurrence: None)
  Receive Date: 20120529
  Receipt Date: 20120521
  Transmission Date: 20120825
  Serious: Yes (Other)
  Sender: FDA-Public Use
  Company Number: RU-SANOFI-AVENTIS-2012SA016233

PATIENT
  Age: 49 Year
  Sex: Female

DRUGS (8)
  1. ASPIRIN [Suspect]
     Route: 048
     Dates: start: 20120101
  2. ASPIRIN [Suspect]
     Route: 048
     Dates: start: 20120101
  3. ATORVASTATIN CALCIUM [Concomitant]
     Route: 048
  4. PLAVIX [Suspect]
     Route: 048
     Dates: start: 20110601, end: 20120501
  5. ATORVASTATIN CALCIUM [Concomitant]
     Route: 048
  6. ASPIRIN [Suspect]
     Indication: THROMBOSIS PROPHYLAXIS
     Route: 048
     Dates: start: 20110601
  7. PLAVIX [Suspect]
     Indication: THROMBOSIS PROPHYLAXIS
     Route: 048
     Dates: start: 20110601, end: 20120501
  8. ASPIRIN [Suspect]
     Route: 048
     Dates: start: 20110601

REACTIONS (2)
  - FRACTURE DELAYED UNION [None]
  - EPISTAXIS [None]
